FAERS Safety Report 19952915 (Version 2)
Quarter: 2022Q1

REPORT INFORMATION
  Report Type: Spontaneous
  Country: US (occurrence: US)
  Receive Date: 20211013
  Receipt Date: 20220226
  Transmission Date: 20220424
  Serious: No
  Sender: FDA-Public Use
  Company Number: US-BRISTOL-MYERS SQUIBB COMPANY-BMS-2021-105734

PATIENT
  Age: 34 Year
  Sex: Male

DRUGS (1)
  1. SPRYCEL [Suspect]
     Active Substance: DASATINIB
     Indication: Chronic myeloid leukaemia
     Dosage: 50 MILLIGRAM, DAILY
     Route: 048
     Dates: start: 201909

REACTIONS (2)
  - Hypertension [Unknown]
  - Palpitations [Unknown]
